FAERS Safety Report 9680158 (Version 2)
Quarter: 2013Q4

REPORT INFORMATION
  Report Type: Spontaneous
  Country: GB (occurrence: IQ)
  Receive Date: 20131111
  Receipt Date: 20131122
  Transmission Date: 20140711
  Serious: Yes (Death, Other)
  Sender: FDA-Public Use
  Company Number: GB-009507513-1311GBR002936

PATIENT
  Age: 50 Year
  Sex: Male

DRUGS (1)
  1. NITRO-DUR [Suspect]
     Dosage: 500 MICROGRAM, UNK

REACTIONS (1)
  - Myocardial infarction [Fatal]
